FAERS Safety Report 8806571 (Version 6)
Quarter: 2013Q3

REPORT INFORMATION
  Report Type: Report from Study
  Country: US (occurrence: US)
  Receive Date: 20120925
  Receipt Date: 20130701
  Transmission Date: 20140515
  Serious: Yes (Hospitalization)
  Sender: FDA-Public Use
  Company Number: US-009507513-1209USA007565

PATIENT
  Age: 58 Year
  Sex: Male
  Weight: 75.74 kg

DRUGS (3)
  1. VICTRELIS [Suspect]
     Indication: CHRONIC HEPATITIS C
     Dosage: 800 MG, QID - 4 DF, QID
     Route: 048
     Dates: start: 20120601
  2. PEGINTRON [Suspect]
     Indication: HEPATITIS C
     Dosage: 120 MICROGRAM, QW
     Route: 058
     Dates: start: 20120504
  3. REBETOL [Suspect]
     Dosage: 600 MG, BID
     Route: 048
     Dates: start: 20120504

REACTIONS (1)
  - Splenic infarction [Unknown]
